FAERS Safety Report 19318486 (Version 2)
Quarter: 2021Q2

REPORT INFORMATION
  Report Type: Report from Study
  Country: US (occurrence: US)
  Receive Date: 20210527
  Receipt Date: 20210611
  Transmission Date: 20210717
  Serious: Yes (Hospitalization, Other)
  Sender: FDA-Public Use
  Company Number: US-BAYER-2021-131208

PATIENT
  Age: 75 Year
  Sex: Female
  Weight: 79.37 kg

DRUGS (5)
  1. ADEMPAS [Suspect]
     Active Substance: RIOCIGUAT
     Indication: PULMONARY ARTERIAL HYPERTENSION
     Dosage: 2 MG, TID
     Route: 048
     Dates: start: 20210510
  2. ADEMPAS [Suspect]
     Active Substance: RIOCIGUAT
     Indication: PULMONARY ARTERIAL HYPERTENSION
     Dosage: UNK
     Dates: start: 20200903
  3. ADEMPAS [Suspect]
     Active Substance: RIOCIGUAT
     Indication: PULMONARY ARTERIAL HYPERTENSION
     Dosage: 2.0 MG, TID
     Route: 048
  4. REMODULIN [Suspect]
     Active Substance: TREPROSTINIL
     Dosage: UNK
  5. ELIQUIS [Suspect]
     Active Substance: APIXABAN
     Dosage: UNK

REACTIONS (8)
  - Vascular device occlusion [None]
  - Complication associated with device [None]
  - Injection site haematoma [None]
  - Catheter site vesicles [Recovering/Resolving]
  - Surgery [None]
  - Vascular device infection [None]
  - Catheter site haemorrhage [Recovering/Resolving]
  - Catheter site irritation [Recovering/Resolving]

NARRATIVE: CASE EVENT DATE: 202104
